FAERS Safety Report 17658012 (Version 2)
Quarter: 2020Q2

REPORT INFORMATION
  Report Type: Spontaneous
  Country: FR (occurrence: FR)
  Receive Date: 20200411
  Receipt Date: 20200508
  Transmission Date: 20200713
  Serious: Yes (Hospitalization, Other)
  Sender: FDA-Public Use
  Company Number: NVSC2020FR097671

PATIENT
  Sex: Female

DRUGS (1)
  1. COSENTYX [Suspect]
     Active Substance: SECUKINUMAB
     Indication: SPONDYLITIS
     Dosage: UNK (SINCE MORE THAN THREE YEARS)
     Route: 065
     Dates: start: 2017

REACTIONS (6)
  - Pyrexia [Recovering/Resolving]
  - Chest pain [Unknown]
  - Respiratory disorder [Unknown]
  - Cough [Recovering/Resolving]
  - Migraine [Recovering/Resolving]
  - Pleurisy [Recovering/Resolving]

NARRATIVE: CASE EVENT DATE: 202003
